FAERS Safety Report 17846513 (Version 1)
Quarter: 2020Q2

REPORT INFORMATION
  Report Type: Spontaneous
  Country: US (occurrence: US)
  Receive Date: 20200601
  Receipt Date: 20200601
  Transmission Date: 20200714
  Serious: Yes (Other)
  Sender: FDA-Public Use
  Company Number: None

PATIENT
  Age: 57 Year
  Sex: Female
  Weight: 131 kg

DRUGS (16)
  1. HEPARIN INFUSION [Concomitant]
     Dates: start: 20200521
  2. METOPROLOL. [Concomitant]
     Active Substance: METOPROLOL
     Dates: start: 20200526
  3. SENNA LIQUID [Concomitant]
     Active Substance: SENNOSIDES
     Dates: start: 20200522
  4. FENTANYL DRIP [Concomitant]
     Dates: start: 20200522
  5. REMDESIVIR. [Suspect]
     Active Substance: REMDESIVIR
     Indication: COVID-19
     Route: 042
     Dates: start: 20200522, end: 20200531
  6. FUROSEMIDE. [Concomitant]
     Active Substance: FUROSEMIDE
     Dates: start: 20200522
  7. INSULIN HUMAN REGULAR [Concomitant]
     Active Substance: INSULIN HUMAN
     Dates: start: 20200525
  8. ETOMIDATE. [Concomitant]
     Active Substance: ETOMIDATE
     Dates: start: 20200522
  9. FAMOTIDINE. [Concomitant]
     Active Substance: FAMOTIDINE
     Dates: start: 20200522
  10. HUMALOG [Concomitant]
     Active Substance: INSULIN LISPRO
     Dates: start: 20200523
  11. METOLAZONE. [Concomitant]
     Active Substance: METOLAZONE
     Dates: start: 20200526
  12. BUMETANIDE DRIP [Concomitant]
     Dates: start: 20200526
  13. MAGNESIUM SULFATE. [Concomitant]
     Active Substance: MAGNESIUM SULFATE
     Dates: start: 20200522
  14. CEFTRIAXONE. [Concomitant]
     Active Substance: CEFTRIAXONE
     Dates: start: 20200522
  15. DOCUSATE SODIUM. [Concomitant]
     Active Substance: DOCUSATE SODIUM
     Dates: start: 20200522
  16. INSULIN DETEMIR [Concomitant]
     Active Substance: INSULIN DETEMIR
     Dates: start: 20200523

REACTIONS (1)
  - Hyperphosphataemia [None]

NARRATIVE: CASE EVENT DATE: 20200527
